FAERS Safety Report 15112821 (Version 3)
Quarter: 2018Q3

REPORT INFORMATION
  Report Type: Spontaneous
  Country: US (occurrence: US)
  Receive Date: 20180705
  Receipt Date: 20180822
  Transmission Date: 20181010
  Serious: Yes (Hospitalization)
  Sender: FDA-Public Use
  Company Number: US-VIFOR (INTERNATIONAL) INC.-VIT-2018-06548

PATIENT
  Age: 55 Year
  Sex: Female
  Weight: 118.3 kg

DRUGS (23)
  1. VIMPAT [Concomitant]
     Active Substance: LACOSAMIDE
  2. CYANOCOBALAMIN. [Concomitant]
     Active Substance: CYANOCOBALAMIN
  3. FELODIPINE. [Concomitant]
     Active Substance: FELODIPINE
  4. DOXAZOSIN MESILATE [Concomitant]
     Active Substance: DOXAZOSIN MESYLATE
  5. FUROSEMIDE. [Concomitant]
     Active Substance: FUROSEMIDE
  6. ACETYLSALICYLIC ACID [Concomitant]
     Active Substance: ASPIRIN
  7. LIPITOR [Concomitant]
     Active Substance: ATORVASTATIN CALCIUM
  8. CARVEDILOL. [Concomitant]
     Active Substance: CARVEDILOL
  9. IRON [Concomitant]
     Active Substance: IRON
  10. TOUJEO [Concomitant]
     Active Substance: INSULIN GLARGINE
  11. ASCORBIC ACID. [Concomitant]
     Active Substance: ASCORBIC ACID
  12. FLONASE [Concomitant]
     Active Substance: FLUTICASONE PROPIONATE
  13. CLONIDINE HYDROCHLORIDE. [Concomitant]
     Active Substance: CLONIDINE HYDROCHLORIDE
  14. PAROXETINE HYDROCHLORIDE. [Concomitant]
     Active Substance: PAROXETINE HYDROCHLORIDE
  15. COLECALCIFEROL [Concomitant]
     Active Substance: CHOLECALCIFEROL
  16. CHLORTALIDONE [Concomitant]
     Active Substance: CHLORTHALIDONE
  17. METFORMIN HYDROCHLORIDE. [Concomitant]
     Active Substance: METFORMIN HYDROCHLORIDE
  18. VELTASSA [Suspect]
     Active Substance: PATIROMER
     Indication: HYPERKALAEMIA
     Route: 048
     Dates: start: 20160820
  19. PLAVIX [Concomitant]
     Active Substance: CLOPIDOGREL BISULFATE
  20. MECLOZINE HYDROCHLORIDE [Concomitant]
     Active Substance: MECLOZINE DIHYDROCHLORIDE
  21. VALSARTAN. [Concomitant]
     Active Substance: VALSARTAN
  22. SODIUM BICARBONATE. [Concomitant]
     Active Substance: SODIUM BICARBONATE
  23. HYDRALAZINE HYDROCHLORIDE. [Concomitant]
     Active Substance: HYDRALAZINE HYDROCHLORIDE

REACTIONS (2)
  - Scan brain [Unknown]
  - Off label use [Unknown]

NARRATIVE: CASE EVENT DATE: 20160820
